FAERS Safety Report 9168122 (Version 2)
Quarter: 2013Q2

REPORT INFORMATION
  Report Type: Spontaneous
  Country: US (occurrence: US)
  Receive Date: 20130318
  Receipt Date: 20130509
  Transmission Date: 20140414
  Serious: Yes (Death, Hospitalization, Other)
  Sender: FDA-Public Use
  Company Number: US-ASTELLAS-2013US002891

PATIENT
  Age: 46 Year
  Sex: Male

DRUGS (3)
  1. PROGRAF [Suspect]
     Indication: LIVER TRANSPLANT
     Dosage: 3.5 MG, UID/QD
     Route: 048
     Dates: start: 1995, end: 20130223
  2. PROGRAF [Suspect]
     Indication: RENAL TRANSPLANT
  3. CYCLOSPORINE [Suspect]
     Indication: PRODUCT USED FOR UNKNOWN INDICATION
     Dosage: UNK
     Route: 065

REACTIONS (7)
  - Cerebral haemorrhage [Fatal]
  - Head injury [Fatal]
  - Adverse drug reaction [Unknown]
  - Arteriosclerosis [Unknown]
  - Renal failure [Unknown]
  - Hypertension [Unknown]
  - Fall [Unknown]
